FAERS Safety Report 24723733 (Version 1)
Quarter: 2024Q4

REPORT INFORMATION
  Report Type: Spontaneous
  Country: US (occurrence: US)
  Receive Date: 20241211
  Receipt Date: 20241211
  Transmission Date: 20250115
  Serious: No
  Sender: SANOFI AVENTIS
  Company Number: US-SA-2024SA364585

PATIENT
  Age: 25 Year
  Sex: Female

DRUGS (1)
  1. DUPIXENT [Suspect]
     Active Substance: DUPILUMAB
     Indication: Nasal polyps
     Dosage: 300 MG, QOW
     Route: 058
     Dates: start: 20240808

REACTIONS (3)
  - Nasopharyngitis [Recovering/Resolving]
  - Anosmia [Recovered/Resolved]
  - Nasal congestion [Recovering/Resolving]

NARRATIVE: CASE EVENT DATE: 20241101
